FAERS Safety Report 21966283 (Version 1)
Quarter: 2023Q1

REPORT INFORMATION
  Report Type: Spontaneous
  Country: None (occurrence: PT)
  Receive Date: 20230208
  Receipt Date: 20230208
  Transmission Date: 20230418
  Serious: Yes (Life-Threatening, Hospitalization)
  Sender: FDA-Public Use
  Company Number: PT-Therakind Limited-2137658

PATIENT
  Age: 62 Year
  Sex: Female
  Weight: 65 kg

DRUGS (4)
  1. METHOTREXATE [Suspect]
     Active Substance: METHOTREXATE
     Indication: Rheumatoid arthritis
  2. LEFLUNOMIDE [Suspect]
     Active Substance: LEFLUNOMIDE
  3. ADALIMUMAB [Suspect]
     Active Substance: ADALIMUMAB
  4. PREDNISOLONE [Suspect]
     Active Substance: PREDNISOLONE

REACTIONS (7)
  - Toxoplasmosis [Recovered/Resolved]
  - Brain oedema [Recovered/Resolved]
  - Motor dysfunction [Recovered/Resolved]
  - Cerebral toxoplasmosis [Recovered/Resolved]
  - Hemiparesis [Recovered/Resolved]
  - Disorientation [Recovered/Resolved]
  - Gait disturbance [Recovered/Resolved]
